FAERS Safety Report 21083348 (Version 1)
Quarter: 2022Q3

REPORT INFORMATION
  Report Type: Spontaneous
  Country: US (occurrence: US)
  Receive Date: 20220714
  Receipt Date: 20220714
  Transmission Date: 20221027
  Serious: Yes (Disabling)
  Sender: FDA-Public Use
  Company Number: US-BAYER-2022A095290

PATIENT
  Age: 52 Year
  Sex: Male

DRUGS (2)
  1. ASPIRIN [Suspect]
     Active Substance: ASPIRIN
  2. ENOXAPARIN [Suspect]
     Active Substance: ENOXAPARIN

REACTIONS (3)
  - Haemorrhage intracranial [None]
  - Encephalitis haemorrhagic [None]
  - Labelled drug-drug interaction medication error [None]
